FAERS Safety Report 6421367-9 (Version None)
Quarter: 2009Q4

REPORT INFORMATION
  Report Type: 
  Country: None (occurrence: None)
  Receive Date: 20091030
  Receipt Date: 20091023
  Transmission Date: 20100525
  Serious: Yes (Other)
  Sender: FDA-Public Use
  Company Number: PHHO2009IT12715

PATIENT
  Sex: Female

DRUGS (2)
  1. CGS 20267 T30748+ [Suspect]
     Indication: RESORPTION BONE INCREASED
     Dosage: UNK
     Route: 048
     Dates: start: 20061108
  2. ZOLEDRONATE T29581+ [Suspect]
     Indication: RESORPTION BONE INCREASED
     Dosage: UNK
     Route: 042
     Dates: start: 20061117

REACTIONS (2)
  - OESTRADIOL DECREASED [None]
  - VAGINAL INFECTION [None]
